FAERS Safety Report 15927420 (Version 3)
Quarter: 2019Q2

REPORT INFORMATION
  Report Type: Spontaneous
  Country: US (occurrence: US)
  Receive Date: 20190206
  Receipt Date: 20190417
  Transmission Date: 20190711
  Serious: No
  Sender: FDA-Public Use
  Company Number: US-PFIZER INC-2019051977

PATIENT
  Age: 57 Year
  Sex: Female

DRUGS (1)
  1. IBRANCE [Suspect]
     Active Substance: PALBOCICLIB
     Indication: BREAST CANCER FEMALE
     Dosage: 125 MG, CYCLIC [TAKE 1 CAPSULE BY MOUTH DAILY ON DAYS 1-21 OF 28 DAY CYCLE]
     Route: 048
     Dates: start: 201901

REACTIONS (5)
  - Neoplasm progression [Not Recovered/Not Resolved]
  - Decreased appetite [Unknown]
  - Fatigue [Unknown]
  - Stress [Unknown]
  - Malaise [Unknown]

NARRATIVE: CASE EVENT DATE: 2019
